FAERS Safety Report 8121183-6 (Version None)
Quarter: 2012Q1

REPORT INFORMATION
  Report Type: 
  Country: None (occurrence: None)
  Receive Date: 20120208
  Receipt Date: 20120130
  Transmission Date: 20120608
  Serious: Yes (Other)
  Sender: FDA-Public Use
  Company Number: ZA-JNJFOC-20120109718

PATIENT
  Sex: Female

DRUGS (4)
  1. REVELLEX [Suspect]
     Indication: COLITIS ULCERATIVE
     Route: 042
  2. PENTASA [Concomitant]
     Indication: COLITIS ULCERATIVE
     Route: 065
  3. AZAPRESS [Concomitant]
     Indication: COLITIS ULCERATIVE
     Route: 065
  4. REVELLEX [Suspect]
     Dosage: PATIENT HAD RECEIVED 9 TH INFUSION AND THE 3RD INFUSION WHILE PREGNANT
     Route: 042
     Dates: start: 20120120, end: 20120120

REACTIONS (6)
  - MATERNAL EXPOSURE DURING PREGNANCY [None]
  - DISCOMFORT [None]
  - INFUSION RELATED REACTION [None]
  - DYSPNOEA [None]
  - HYPOTENSION [None]
  - BRONCHOSPASM [None]
